FAERS Safety Report 5135686-X (Version None)
Quarter: 2006Q4

REPORT INFORMATION
  Report Type: 
  Country: None (occurrence: None)
  Receive Date: 20061024
  Receipt Date: 20061024
  Transmission Date: 20070319
  Serious: Yes (Other)
  Sender: FDA-Public Use
  Company Number: None

PATIENT
  Age: 50 Year
  Sex: Female

DRUGS (6)
  1. FLUORESCEIN [Suspect]
     Indication: ANGIOGRAM
     Dosage: 5 ML IV
     Route: 042
     Dates: start: 20060907, end: 20060908
  2. ERGOCALCIFEROL [Concomitant]
  3. CALCIUM [Concomitant]
  4. LORATADINE [Concomitant]
  5. LANSOPRAZOLE [Concomitant]
  6. CYCLOSPORINE [Concomitant]

REACTIONS (8)
  - BLOOD PRESSURE DIASTOLIC INCREASED [None]
  - COUGH [None]
  - ERYTHEMA [None]
  - SIMILAR REACTION ON PREVIOUS EXPOSURE TO DRUG [None]
  - SOMNOLENCE [None]
  - THROAT IRRITATION [None]
  - THROAT TIGHTNESS [None]
  - URTICARIA [None]
